FAERS Safety Report 6490911-8 (Version None)
Quarter: 2009Q4

REPORT INFORMATION
  Report Type: 
  Country: None (occurrence: None)
  Receive Date: 20091211
  Receipt Date: 20091203
  Transmission Date: 20100525
  Serious: Yes (Congenital Anomaly)
  Sender: FDA-Public Use
  Company Number: US-WATSON-2009-09800

PATIENT
  Age: 20 Week

DRUGS (13)
  1. NORCO [Suspect]
     Indication: DELIVERY
     Dosage: ^ONE TO TWO EVERY FOUR HOURS PRN^
     Route: 064
     Dates: start: 20090301
  2. NORCO 10/325 (WATSON LABORATORIES) [Suspect]
     Indication: PAIN
     Dosage: ^ONE TO TWO EVERY FOUR HOURS AS REQUIRED^
     Route: 064
     Dates: start: 20081219
  3. NORCO 10/325 (WATSON LABORATORIES) [Suspect]
     Dosage: ^ONE TO TWO EVERY FOUR HOURS AS REQUIRED FOR PAIN^
     Route: 064
  4. REBIF [Suspect]
     Indication: MULTIPLE SCLEROSIS
     Dosage: 44 MCG, 3 IN 1 WEEK
     Route: 064
     Dates: start: 20080809, end: 20081126
  5. YAZ [Suspect]
     Indication: CONTRACEPTION
     Dosage: UNK
     Route: 064
     Dates: start: 20080601, end: 20081201
  6. FLEXERIL [Suspect]
     Indication: MUSCLE SPASMS
     Dosage: 20 MG, DAILY
     Route: 064
  7. FLEXERIL [Suspect]
     Dosage: 10 MG, 3-4 TIMES DAILY
     Route: 064
  8. ENOXAPARIN SODIUM [Suspect]
     Indication: PULMONARY EMBOLISM
     Dosage: UNK
     Route: 064
     Dates: start: 20081216, end: 20090701
  9. ENOXAPARIN SODIUM [Suspect]
     Indication: MULTIPLE SCLEROSIS
  10. CYMBALTA [Concomitant]
     Indication: DEPRESSION
     Dosage: UNK
     Route: 065
     Dates: end: 20081126
  11. NAPROSYN [Concomitant]
     Indication: DRUG USE FOR UNKNOWN INDICATION
     Dosage: 800 MG, DAILY
     Route: 065
     Dates: end: 20081126
  12. FISH OIL [Concomitant]
     Indication: DRUG USE FOR UNKNOWN INDICATION
     Dosage: 6- 100 MG TABS PRN
     Route: 065
     Dates: end: 20081126
  13. BACTRIM [Concomitant]
     Indication: URINARY TRACT INFECTION
     Dosage: UNK
     Route: 065
     Dates: start: 20081001

REACTIONS (8)
  - ABORTION INDUCED [None]
  - CONGENITAL CENTRAL NERVOUS SYSTEM ANOMALY [None]
  - CONGENITAL HYDROCEPHALUS [None]
  - MATERNAL DRUGS AFFECTING FOETUS [None]
  - MENINGOMYELOCELE [None]
  - NEURAL TUBE DEFECT [None]
  - SPINA BIFIDA [None]
  - TALIPES [None]
